FAERS Safety Report 9422054 (Version 1)
Quarter: 2013Q3

REPORT INFORMATION
  Report Type: Spontaneous
  Country: DE (occurrence: DE)
  Receive Date: 20130726
  Receipt Date: 20130726
  Transmission Date: 20140515
  Serious: Yes (Other)
  Sender: FDA-Public Use
  Company Number: DE-INCYTE CORPORATION-2012IN002500

PATIENT
  Age: 71 Year
  Sex: Female
  Weight: 65 kg

DRUGS (4)
  1. JAKAVI [Suspect]
     Indication: MYELOFIBROSIS
     Dosage: 5 MG, BID
     Route: 065
     Dates: start: 20121011
  2. JAKAVI [Suspect]
     Dosage: 5 MG, TID
     Route: 065
     Dates: start: 20121024
  3. JAKAVI [Suspect]
     Dosage: 5 MG, QID
     Route: 065
     Dates: start: 20121129
  4. JAKAVI [Suspect]
     Dosage: 5 MG, 2 TABLETS, BID
     Route: 065

REACTIONS (2)
  - Depression [Not Recovered/Not Resolved]
  - Weight increased [Not Recovered/Not Resolved]
